FAERS Safety Report 10086480 (Version 1)
Quarter: 2014Q2

REPORT INFORMATION
  Report Type: Spontaneous
  Country: GB (occurrence: GB)
  Receive Date: 20140418
  Receipt Date: 20140418
  Transmission Date: 20141212
  Serious: Yes (Disabling)
  Sender: FDA-Public Use
  Company Number: GB-ASTRAZENECA-2014SE25263

PATIENT
  Age: 75 Year
  Sex: Male

DRUGS (3)
  1. ZOLADEX [Suspect]
     Indication: PROSTATE CANCER
     Route: 058
     Dates: start: 20130301, end: 20140301
  2. ATORVASTATIN [Concomitant]
     Route: 048
  3. METFORMIN [Concomitant]
     Indication: TYPE 2 DIABETES MELLITUS
     Route: 048

REACTIONS (1)
  - Interstitial lung disease [Not Recovered/Not Resolved]
